FAERS Safety Report 13761083 (Version 8)
Quarter: 2019Q4

REPORT INFORMATION
  Report Type: Spontaneous
  Country: KR (occurrence: KR)
  Receive Date: 20170717
  Receipt Date: 20191220
  Transmission Date: 20200122
  Serious: Yes (Hospitalization, Other)
  Sender: FDA-Public Use
  Company Number: KR-009507513-1707KOR004109

PATIENT
  Age: 42 Year
  Sex: Female
  Weight: 62.1 kg

DRUGS (13)
  1. IDARUBICIN HYDROCHLORIDE. [Concomitant]
     Active Substance: IDARUBICIN HYDROCHLORIDE
     Indication: ACUTE MYELOID LEUKAEMIA
     Dosage: 19.3 MG, QOD
     Route: 042
     Dates: start: 20170512, end: 20170516
  2. RABIET [Concomitant]
     Indication: PROPHYLAXIS
     Dosage: 10 MG, ONCE DAILY
     Route: 048
     Dates: start: 20170511, end: 20170623
  3. NASEA [Concomitant]
     Active Substance: RAMOSETRON HYDROCHLORIDE
     Indication: PROPHYLAXIS OF NAUSEA AND VOMITING
     Dosage: 0.3 MG, ONCE DAILY
     Route: 042
     Dates: start: 20170512, end: 20170512
  4. LASIX [Concomitant]
     Active Substance: FUROSEMIDE
     Indication: WEIGHT INCREASED
     Dosage: 20 MILLIGRAM, AS NEEDED (WHEN WEIGHT INCREASES)
     Route: 042
     Dates: start: 20170512, end: 20170606
  5. NOXAFIL [Suspect]
     Active Substance: POSACONAZOLE
     Dosage: 300 MG, ONCE A DAY
     Route: 048
     Dates: start: 20170514, end: 20170520
  6. DENOGAN [Concomitant]
     Active Substance: PROPACETAMOL HYDROCHLORIDE
     Indication: PYREXIA
     Dosage: 1 G, AS NEEDED  (WHEN FEVER OCCURS)
     Route: 042
     Dates: start: 20170510, end: 20170510
  7. MUCOSTA [Concomitant]
     Active Substance: REBAMIPIDE
     Indication: PROPHYLAXIS
     Dosage: 100 MG, THREE TIMES A DAY
     Route: 048
     Dates: start: 20170512, end: 20170623
  8. ZYLORIC [Concomitant]
     Active Substance: ALLOPURINOL
     Indication: ACUTE MYELOID LEUKAEMIA
     Dosage: 100 MG, THREE TIMES A DAY
     Route: 048
     Dates: start: 20170511, end: 20170516
  9. PENIRAMIN [Concomitant]
     Indication: PROPHYLAXIS
     Dosage: 4 MG, TRANSFUSION AS NEEDED
     Route: 042
     Dates: start: 20170510, end: 20170602
  10. HEXAMEDINE [Concomitant]
     Indication: STOMATITIS
     Dosage: 1 SIP, ONCE DAILY, ROUTE: FOR EXTERNAL USE
     Route: 050
     Dates: start: 20170511, end: 20170608
  11. TAZOPERAN [Concomitant]
     Indication: TONSILLITIS
     Dosage: 4.5 G, THREE TIMES A DAY
     Route: 042
     Dates: start: 20170510, end: 20170517
  12. NOXAFIL [Suspect]
     Active Substance: POSACONAZOLE
     Indication: ANTIFUNGAL PROPHYLAXIS
     Dosage: 300 MG, TWICE A DAY
     Route: 048
     Dates: start: 20170513, end: 20170513
  13. VESANOID [Concomitant]
     Active Substance: TRETINOIN
     Indication: ACUTE MYELOID LEUKAEMIA
     Dosage: 10 MG, ONCE DAILY
     Route: 048
     Dates: start: 20170510, end: 20170623

REACTIONS (11)
  - Differentiation syndrome [Recovered/Resolved]
  - Headache [Recovered/Resolved]
  - Pruritus genital [Recovered/Resolved]
  - Conjunctival hyperaemia [Recovered/Resolved]
  - Catheter site pain [Recovered/Resolved]
  - Pyrexia [Recovered/Resolved]
  - Hypophosphataemia [Recovered/Resolved]
  - Cough [Recovered/Resolved]
  - Herpes virus infection [Recovered/Resolved]
  - Hypokalaemia [Recovered/Resolved]
  - Haemorrhoids [Recovered/Resolved]

NARRATIVE: CASE EVENT DATE: 20170513
